FAERS Safety Report 6738700-0 (Version None)
Quarter: 2010Q2

REPORT INFORMATION
  Report Type: 
  Country: None (occurrence: None)
  Receive Date: 20100524
  Receipt Date: 20100514
  Transmission Date: 20101027
  Serious: Yes (Other)
  Sender: FDA-Public Use
  Company Number: US-PFIZER INC-2010061770

PATIENT
  Sex: Female
  Weight: 48.073 kg

DRUGS (2)
  1. LYRICA [Suspect]
     Indication: TRIGEMINAL NEURALGIA
     Dosage: 50 MG, 1X/DAY
     Route: 048
     Dates: start: 20091101, end: 20100501
  2. ACTONEL [Concomitant]
     Indication: OSTEOPOROSIS
     Dosage: UNK

REACTIONS (9)
  - ACTIVITIES OF DAILY LIVING IMPAIRED [None]
  - ARTHRALGIA [None]
  - FATIGUE [None]
  - GAIT DISTURBANCE [None]
  - INSOMNIA [None]
  - MUSCULAR WEAKNESS [None]
  - PAIN [None]
  - TRIGEMINAL NEURALGIA [None]
  - WEIGHT DECREASED [None]
